FAERS Safety Report 9476486 (Version 2)
Quarter: 2013Q3

REPORT INFORMATION
  Report Type: Spontaneous
  Country: CA (occurrence: CA)
  Receive Date: 20130826
  Receipt Date: 20130826
  Transmission Date: 20140515
  Serious: Yes (Hospitalization, Other)
  Sender: FDA-Public Use
  Company Number: CA-VERTEX PHARMACEUTICALS INC.-2013-004011

PATIENT
  Age: 70 Year
  Sex: Male

DRUGS (10)
  1. INCIVEK [Suspect]
     Indication: HEPATITIS C
     Dosage: 750 MG, UNK
     Dates: start: 20121213
  2. INCIVEK [Suspect]
     Dosage: 600 MG, BID
     Dates: end: 20130307
  3. PEGASYS [Suspect]
     Indication: HEPATITIS C
     Dosage: 180 ?G, QW
     Route: 058
     Dates: start: 20121115
  4. PEGASYS [Suspect]
     Dosage: 135 ?G, QW
     Route: 058
     Dates: start: 20130214, end: 20130626
  5. RIBAVIRIN [Suspect]
     Indication: HEPATITIS C
     Dosage: 1400 MG, QD
     Route: 048
     Dates: start: 20121115
  6. RIBAVIRIN [Suspect]
     Dosage: 1000 MG, QD
     Route: 048
  7. RIBAVIRIN [Suspect]
     Dosage: 400 MG, QD
     Route: 048
     Dates: start: 20130122, end: 20130626
  8. MEZAPAM [Concomitant]
  9. TEMAZEPAM [Concomitant]
  10. VITAMIN D [Concomitant]

REACTIONS (9)
  - Pneumonia [Unknown]
  - Anaemia [Unknown]
  - Rash [Recovered/Resolved]
  - Pruritus [Unknown]
  - Balance disorder [Not Recovered/Not Resolved]
  - Fall [Recovered/Resolved]
  - Oedema [Recovered/Resolved]
  - Fatigue [Not Recovered/Not Resolved]
  - Oedema peripheral [Recovered/Resolved]
